FAERS Safety Report 12835420 (Version 1)
Quarter: 2016Q4

REPORT INFORMATION
  Report Type: Other
  Country: US (occurrence: US)
  Receive Date: 20161011
  Receipt Date: 20161011
  Transmission Date: 20170207
  Serious: Yes (Hospitalization, Other)
  Sender: FDA-Public Use
  Company Number: US-SHIRE-US201613616

PATIENT
  Age: 61 Year
  Sex: Male

DRUGS (1)
  1. GATTEX [Suspect]
     Active Substance: TEDUGLUTIDE\WATER
     Indication: SHORT-BOWEL SYNDROME
     Dosage: 3.334 MG/KG, 1X/DAY:QD
     Route: 058
     Dates: start: 20160823, end: 20160929

REACTIONS (6)
  - Hepatic failure [Unknown]
  - Product quality issue [Unknown]
  - Device related sepsis [Unknown]
  - Drug ineffective [Unknown]
  - Weight decreased [Unknown]
  - Hepatic cirrhosis [Not Recovered/Not Resolved]

NARRATIVE: CASE EVENT DATE: 2016
